FAERS Safety Report 7121452-2 (Version None)
Quarter: 2010Q4

REPORT INFORMATION
  Report Type: 
  Country: None (occurrence: None)
  Receive Date: 20101124
  Receipt Date: 20101115
  Transmission Date: 20110411
  Serious: Yes (Other)
  Sender: FDA-Public Use
  Company Number: CHPA2010US17845

PATIENT
  Sex: Female

DRUGS (8)
  1. PRIVATE LABEL STRENGTH UNKNOWN (NCH) [Suspect]
     Dosage: UNK, UNK
     Route: 062
  2. EFFEXOR XR [Suspect]
     Dosage: 150 MG, UNK
  3. EFFEXOR XR [Suspect]
     Dosage: 300 MG, UNK
  4. PROZAC [Suspect]
     Dosage: 40 MG, UNK
  5. PROPRANOLOL [Suspect]
     Dosage: 20 MG, UNK
  6. ATENOLOL [Suspect]
  7. CLONOPIN [Suspect]
     Dosage: 1 MG, UNK
  8. ALEVE [Suspect]

REACTIONS (32)
  - ABDOMINAL DISTENSION [None]
  - ABDOMINAL PAIN UPPER [None]
  - ANGER [None]
  - ANXIETY [None]
  - ARTHRALGIA [None]
  - CHEST PAIN [None]
  - CHILLS [None]
  - CONSTIPATION [None]
  - DIARRHOEA [None]
  - DISCOMFORT [None]
  - DIZZINESS [None]
  - DRUG DEPENDENCE [None]
  - ELECTRIC SHOCK [None]
  - FEELING ABNORMAL [None]
  - FLUID RETENTION [None]
  - HEADACHE [None]
  - HYPERHIDROSIS [None]
  - HYPERVIGILANCE [None]
  - INSOMNIA [None]
  - IRRITABILITY [None]
  - JOINT RANGE OF MOTION DECREASED [None]
  - MUSCLE SWELLING [None]
  - MUSCLE TIGHTNESS [None]
  - MUSCLE TWITCHING [None]
  - MYALGIA [None]
  - NAUSEA [None]
  - NIGHTMARE [None]
  - PAIN [None]
  - PAIN IN EXTREMITY [None]
  - POISONING [None]
  - SWELLING [None]
  - VISUAL IMPAIRMENT [None]
